FAERS Safety Report 5700915-8 (Version None)
Quarter: 2008Q2

REPORT INFORMATION
  Report Type: 
  Country: None (occurrence: None)
  Receive Date: 20080410
  Receipt Date: 20080331
  Transmission Date: 20081010
  Serious: Yes (Death, Hospitalization)
  Sender: FDA-Public Use
  Company Number: B0502339A

PATIENT
  Age: 59 Year
  Sex: Male

DRUGS (1)
  1. ZINNAT [Suspect]
     Indication: SKIN INFECTION
     Dosage: 2TAB PER DAY
     Route: 048
     Dates: start: 20071130, end: 20071130

REACTIONS (4)
  - ANAPHYLACTIC SHOCK [None]
  - CARDIAC ARREST [None]
  - COMA [None]
  - STATUS EPILEPTICUS [None]
